FAERS Safety Report 6681678-9 (Version None)
Quarter: 2010Q2

REPORT INFORMATION
  Report Type: 
  Country: None (occurrence: None)
  Receive Date: 20100412
  Receipt Date: 20100330
  Transmission Date: 20101027
  Serious: Yes (Other)
  Sender: FDA-Public Use
  Company Number: DSM-2010-00513

PATIENT
  Age: 50 Year
  Sex: Female

DRUGS (2)
  1. SEVIKAR (AMLODIPINE, OLMESARTAN MEDOXOMIL) (AMLODIPINE, OLMESARTAN MED [Suspect]
     Indication: DRUG USE FOR UNKNOWN INDICATION
  2. LEVOTHYROX (LEVOTHYROXINE SODIUM) (LEVOTHYROXINE SODIUM) [Concomitant]

REACTIONS (2)
  - BLOOD CREATINE PHOSPHOKINASE INCREASED [None]
  - MYALGIA [None]
